FAERS Safety Report 15016908 (Version 1)
Quarter: 2018Q2

REPORT INFORMATION
  Report Type: Spontaneous
  Country: CA (occurrence: CA)
  Receive Date: 20180615
  Receipt Date: 20180615
  Transmission Date: 20180711
  Serious: Yes (Other)
  Sender: FDA-Public Use
  Company Number: CA-PFIZER INC-2018236876

PATIENT
  Age: 73 Year
  Sex: Male

DRUGS (2)
  1. METHOTREXATE SODIUM. [Suspect]
     Active Substance: METHOTREXATE SODIUM
     Dosage: UNK, WEEKLY
  2. FOLIC ACID. [Concomitant]
     Active Substance: FOLIC ACID
     Dosage: UNK, WEEKLY

REACTIONS (7)
  - Arthropathy [Unknown]
  - Exostosis [Unknown]
  - Finger deformity [Unknown]
  - Joint lock [Unknown]
  - Rotator cuff syndrome [Unknown]
  - Peripheral swelling [Unknown]
  - Arthralgia [Unknown]
